FAERS Safety Report 12451558 (Version 1)
Quarter: 2016Q2

REPORT INFORMATION
  Report Type: Spontaneous
  Country: US (occurrence: US)
  Receive Date: 20160609
  Receipt Date: 20160609
  Transmission Date: 20160815
  Serious: Yes (Other)
  Sender: FDA-Public Use
  Company Number: US-WATSON-2016-11747

PATIENT
  Age: 22 Year
  Sex: Male
  Weight: 70 kg

DRUGS (8)
  1. VASOPRESSIN. [Concomitant]
     Active Substance: VASOPRESSIN
     Indication: ORGAN DONOR
     Dosage: UNK
     Route: 065
  2. NOREPINEPHRINE [Concomitant]
     Active Substance: NOREPINEPHRINE\NOREPINEPHRINE BITARTRATE
     Indication: BLOOD PRESSURE MANAGEMENT
     Dosage: UNK
     Route: 051
  3. DESMOPRESSIN [Concomitant]
     Active Substance: DESMOPRESSIN
     Indication: ORGAN DONOR
     Dosage: UNK
     Route: 065
  4. TRANEXAMIC ACID (ACTAVIS LABORATORIES FL) [Suspect]
     Active Substance: TRANEXAMIC ACID
     Indication: DISSEMINATED INTRAVASCULAR COAGULATION
     Dosage: UNK
     Route: 065
  5. LEVOTHYROXINE. [Concomitant]
     Active Substance: LEVOTHYROXINE
     Indication: ORGAN DONOR
     Dosage: UNK
     Route: 065
  6. TRANEXAMIC ACID (ACTAVIS LABORATORIES FL) [Suspect]
     Active Substance: TRANEXAMIC ACID
     Indication: HAEMOLYSIS
  7. EPINEPHRINE. [Concomitant]
     Active Substance: EPINEPHRINE
     Indication: BLOOD PRESSURE MANAGEMENT
     Dosage: UNK
     Route: 051
  8. METHYLPREDNISOLONE. [Concomitant]
     Active Substance: METHYLPREDNISOLONE
     Indication: ORGAN DONOR
     Dosage: UNK
     Route: 065

REACTIONS (1)
  - Renal vascular thrombosis [Recovered/Resolved]
